FAERS Safety Report 4571899-3 (Version None)
Quarter: 2005Q1

REPORT INFORMATION
  Report Type: 
  Country: None (occurrence: None)
  Receive Date: 20050202
  Receipt Date: 20050118
  Transmission Date: 20050727
  Serious: Yes (Hospitalization)
  Sender: FDA-Public Use
  Company Number: US-2005-000749

PATIENT
  Age: 50 Year
  Sex: Male
  Weight: 125.6 kg

DRUGS (4)
  1. GM-CSF (SARBRAMOSTIM) INJECTION [Suspect]
     Indication: MALIGNANT MELANOMA
     Dosage: 250 UG/D; 14 DAYS ON; 14 DAYS OFF, SUBCUTANEOUS
     Route: 058
     Dates: start: 20020123, end: 20050101
  2. PROPRANOL (PROPRANOLOL) [Concomitant]
  3. MOTRIN [Concomitant]
  4. NEURONTIN [Concomitant]

REACTIONS (1)
  - ACUTE MYELOID LEUKAEMIA [None]
